FAERS Safety Report 7291936-5 (Version None)
Quarter: 2011Q1

REPORT INFORMATION
  Report Type: 
  Country: None (occurrence: None)
  Receive Date: 20110214
  Receipt Date: 20110208
  Transmission Date: 20110831
  Serious: Yes (Hospitalization)
  Sender: FDA-Public Use
  Company Number: ES-MERCK-1102ESP00011

PATIENT
  Age: 65 Year
  Sex: Male

DRUGS (4)
  1. SPIRONOLACTONE [Suspect]
     Indication: ASCITES
     Route: 048
     Dates: start: 20101108, end: 20101120
  2. PROPRANOLOL HYDROCHLORIDE [Concomitant]
     Indication: VARICES OESOPHAGEAL
     Route: 048
     Dates: start: 20060101
  3. COZAAR [Suspect]
     Indication: PULMONARY HYPERTENSION
     Route: 048
     Dates: start: 20101108, end: 20101120
  4. ENTECAVIR [Concomitant]
     Indication: HEPATITIS B
     Route: 048
     Dates: start: 20060101

REACTIONS (4)
  - METABOLIC ENCEPHALOPATHY [None]
  - RENAL FAILURE ACUTE [None]
  - ELECTROCARDIOGRAM CHANGE [None]
  - HYPERKALAEMIA [None]
